FAERS Safety Report 7767103-5 (Version None)
Quarter: 2011Q3

REPORT INFORMATION
  Report Type: 
  Country: None (occurrence: None)
  Receive Date: 20110922
  Receipt Date: 20101019
  Transmission Date: 20111222
  Serious: No
  Sender: FDA-Public Use
  Company Number: US-ASTRAZENECA-2010SE49458

PATIENT
  Age: 26 Year
  Sex: Female
  Weight: 149.7 kg

DRUGS (5)
  1. SEROQUEL [Suspect]
     Route: 048
     Dates: start: 20100701
  2. LASIX [Concomitant]
  3. XANAX [Concomitant]
  4. SEROQUEL [Suspect]
     Indication: BIPOLAR DISORDER
     Route: 048
     Dates: start: 20100501, end: 20100701
  5. SYNTHROID [Concomitant]

REACTIONS (5)
  - WEIGHT INCREASED [None]
  - VOMITING [None]
  - TREMOR [None]
  - DRUG DOSE OMISSION [None]
  - HYPOTHYROIDISM [None]
